FAERS Safety Report 20085806 (Version 1)
Quarter: 2021Q4

REPORT INFORMATION
  Report Type: Spontaneous
  Country: US (occurrence: US)
  Receive Date: 20211118
  Receipt Date: 20211118
  Transmission Date: 20220303
  Serious: No
  Sender: FDA-Public Use
  Company Number: US-PFIZER INC-202101539761

PATIENT
  Age: 69 Year
  Sex: Female

DRUGS (1)
  1. XELJANZ XR [Suspect]
     Active Substance: TOFACITINIB CITRATE
     Indication: Rheumatoid arthritis
     Dosage: 11 MG, 1X/DAY
     Route: 048
     Dates: start: 202109

REACTIONS (5)
  - Peripheral swelling [Recovering/Resolving]
  - Pain [Recovering/Resolving]
  - Hypokinesia [Recovering/Resolving]
  - Discouragement [Recovering/Resolving]
  - Depressed mood [Recovering/Resolving]
